FAERS Safety Report 21809435 (Version 1)
Quarter: 2023Q1

REPORT INFORMATION
  Report Type: Report from Study
  Country: US (occurrence: US)
  Receive Date: 20230103
  Receipt Date: 20230103
  Transmission Date: 20230417
  Serious: No
  Sender: FDA-Public Use
  Company Number: US-ABBVIE-4212212

PATIENT
  Sex: Female

DRUGS (6)
  1. RINVOQ [Suspect]
     Active Substance: UPADACITINIB
     Indication: Rheumatoid arthritis
     Dosage: FORM STRENGTH: 15 MILLIGRAM
     Route: 048
     Dates: start: 20210421
  2. Zanaflex 2 MG [Concomitant]
     Indication: Product used for unknown indication
     Route: 048
  3. Pepcid Oral Tablet 40 MG [Concomitant]
     Indication: Product used for unknown indication
     Route: 048
  4. Methotrexate  2.5 MG [Concomitant]
     Indication: Product used for unknown indication
     Route: 048
  5. Ferrous Sulfate 325 MG [Concomitant]
     Indication: Product used for unknown indication
     Route: 048
  6. SYNTHROID [Concomitant]
     Active Substance: LEVOTHYROXINE SODIUM
     Indication: Product used for unknown indication
     Route: 048

REACTIONS (2)
  - Rash [Not Recovered/Not Resolved]
  - Blister [Unknown]

NARRATIVE: CASE EVENT DATE: 20220101
